FAERS Safety Report 12309044 (Version 1)
Quarter: 2016Q2

REPORT INFORMATION
  Report Type: Spontaneous
  Country: DE (occurrence: DE)
  Receive Date: 20160427
  Receipt Date: 20160427
  Transmission Date: 20160815
  Serious: Yes (Other)
  Sender: FDA-Public Use
  Company Number: DE-BAUSCH-BL-2016-009324

PATIENT
  Age: 53 Year
  Sex: Female

DRUGS (10)
  1. DICLOFENAC [Suspect]
     Active Substance: DICLOFENAC
     Indication: PAIN
     Route: 048
  2. CHOLESTYRAMINE. [Suspect]
     Active Substance: CHOLESTYRAMINE
     Indication: PRODUCT USED FOR UNKNOWN INDICATION
     Route: 048
  3. OXYCODONE / NALOXONE [Concomitant]
     Indication: CONSTIPATION
     Dosage: 10 / 5 MG
     Route: 048
  4. TARGIN [Concomitant]
     Active Substance: NALOXONE HYDROCHLORIDE\OXYCODONE HYDROCHLORIDE
     Indication: CONSTIPATION
     Route: 065
  5. OXYCODONE / NALOXONE [Concomitant]
     Dosage: DOSAGE INCREASED FROM 10 / 5 TO 20 / 10 MG ON DAY 19
     Route: 048
  6. PANTOPRAZOLE [Concomitant]
     Active Substance: PANTOPRAZOLE SODIUM
     Indication: PROPHYLAXIS
     Route: 042
  7. CEFTRIAXONE. [Concomitant]
     Active Substance: CEFTRIAXONE
     Indication: EVIDENCE BASED TREATMENT
     Dosage: DAY 1 - DAY 3
     Route: 042
  8. CLINDAMYCIN [Suspect]
     Active Substance: CLINDAMYCIN\CLINDAMYCIN PHOSPHATE
     Indication: ESCHERICHIA INFECTION
     Dosage: DAY 4 - DAY 20
     Route: 042
  9. GENTAMICIN. [Suspect]
     Active Substance: GENTAMICIN
     Indication: ESCHERICHIA INFECTION
     Dosage: DAY 4 - DAY 20
     Route: 042
  10. METRONIDAZOLE. [Concomitant]
     Active Substance: METRONIDAZOLE
     Indication: EVIDENCE BASED TREATMENT
     Dosage: DAY 1 - DAY 3
     Route: 042

REACTIONS (1)
  - Acute kidney injury [Recovered/Resolved]
